FAERS Safety Report 7019620-3 (Version None)
Quarter: 2010Q3

REPORT INFORMATION
  Report Type: 
  Country: None (occurrence: None)
  Receive Date: 20100928
  Receipt Date: 20100928
  Transmission Date: 20110219
  Serious: No
  Sender: FDA-Public Use
  Company Number: None

PATIENT
  Sex: Female
  Weight: 107.9561 kg

DRUGS (1)
  1. LISINOPRIL [Suspect]
     Indication: HYPERTENSION
     Dosage: 20 QD PO
     Route: 048
     Dates: start: 20100201

REACTIONS (3)
  - COUGH [None]
  - DYSPNOEA [None]
  - HYPONATRAEMIA [None]
